FAERS Safety Report 11986565 (Version 1)
Quarter: 2016Q1

REPORT INFORMATION
  Report Type: Spontaneous
  Country: US (occurrence: None)
  Receive Date: 20160201
  Receipt Date: 20160201
  Transmission Date: 20160526
  Serious: No
  Sender: FDA-Public Use
  Company Number: None

PATIENT
  Age: 21 Year
  Sex: Male
  Weight: 97.52 kg

DRUGS (3)
  1. PEPCID [Concomitant]
     Active Substance: FAMOTIDINE
  2. OMEPRAZOLE 40 MG KREMERS URBAN [Suspect]
     Active Substance: OMEPRAZOLE
     Indication: ABDOMINAL PAIN UPPER
     Dosage: 1  PILL ONCE DAILY TAKEN BY MOUTH
     Route: 048
  3. OMEPRAZOLE 40 MG KREMERS URBAN [Suspect]
     Active Substance: OMEPRAZOLE
     Indication: NAUSEA
     Dosage: 1  PILL ONCE DAILY TAKEN BY MOUTH
     Route: 048

REACTIONS (4)
  - Tongue discolouration [None]
  - Decreased appetite [None]
  - Weight decreased [None]
  - Glossodynia [None]

NARRATIVE: CASE EVENT DATE: 20151101
